FAERS Safety Report 5125760-6 (Version None)
Quarter: 2006Q4

REPORT INFORMATION
  Report Type: 
  Country: None (occurrence: None)
  Receive Date: 20061012
  Receipt Date: 20061005
  Transmission Date: 20070319
  Serious: Yes (Other)
  Sender: FDA-Public Use
  Company Number: US-AVENTIS-200618356US

PATIENT
  Sex: Female

DRUGS (5)
  1. LASIX [Suspect]
  2. AVAPRO [Concomitant]
  3. CATAPRES                           /00171101/ [Concomitant]
  4. MINOXIDIL [Concomitant]
  5. POT CL [Concomitant]

REACTIONS (3)
  - CARDIAC FAILURE CONGESTIVE [None]
  - DIABETES MELLITUS [None]
  - HEART RATE IRREGULAR [None]
